FAERS Safety Report 7989147-0 (Version None)
Quarter: 2011Q4

REPORT INFORMATION
  Report Type: 
  Country: None (occurrence: None)
  Receive Date: 20111219
  Receipt Date: 20111214
  Transmission Date: 20120403
  Serious: Yes (Life-Threatening)
  Sender: FDA-Public Use
  Company Number: DE-BRISTOL-MYERS SQUIBB COMPANY-16283632

PATIENT
  Age: 56 Year
  Sex: Female

DRUGS (1)
  1. ETOPOPHOS PRESERVATIVE FREE [Suspect]
     Indication: HODGKIN'S DISEASE
     Dosage: INFUSION.
     Dates: start: 20110708

REACTIONS (1)
  - ANAPHYLACTIC SHOCK [None]
